FAERS Safety Report 8960587 (Version 2)
Quarter: 2013Q1

REPORT INFORMATION
  Report Type: Spontaneous
  Country: US (occurrence: None)
  Receive Date: 20121130
  Receipt Date: 20121206
  Transmission Date: 20140127
  Serious: Yes (Hospitalization, Other)
  Sender: FDA-Public Use
  Company Number: 2012AP004034

PATIENT
  Age: 58 Year
  Sex: Male

DRUGS (1)
  1. ALLOPURINOL TABLETS, USP [Suspect]
     Indication: PRODUCT USED FOR UNKNOWN INDICATION

REACTIONS (3)
  - Drug reaction with eosinophilia and systemic symptoms [None]
  - Pancreatitis [None]
  - Hepatitis [None]
